FAERS Safety Report 21659577 (Version 2)
Quarter: 2022Q4

REPORT INFORMATION
  Report Type: Report from Study
  Country: US (occurrence: US)
  Receive Date: 20221129
  Receipt Date: 20221205
  Transmission Date: 20230113
  Serious: Yes (Life-Threatening, Hospitalization, Other)
  Sender: FDA-Public Use
  Company Number: US-BRISTOL-MYERS SQUIBB COMPANY-2022-132632

PATIENT
  Age: 73 Year
  Sex: Female

DRUGS (6)
  1. PACLITAXEL [Suspect]
     Active Substance: PACLITAXEL
     Indication: Product used for unknown indication
     Dosage: FREQUENCY- DAYS 1, 8 AND 28 OF EACH CYCLE.
     Route: 042
     Dates: start: 20221004
  2. PACLITAXEL [Suspect]
     Active Substance: PACLITAXEL
     Dosage: CYCLE 1 DAY 8 (C1D8)
     Route: 042
     Dates: start: 20221011
  3. ELIQUIS [Suspect]
     Active Substance: APIXABAN
     Indication: Antiplatelet therapy
     Route: 048
     Dates: start: 20220322
  4. CLOPIDOGREL [Concomitant]
     Active Substance: CLOPIDOGREL BISULFATE
     Indication: Antiplatelet therapy
     Route: 048
     Dates: start: 20220322
  5. RANOLAZINE [Concomitant]
     Active Substance: RANOLAZINE
     Indication: Coronary artery disease
     Route: 048
     Dates: start: 20220322
  6. VICTOZA [Concomitant]
     Active Substance: LIRAGLUTIDE
     Indication: Diabetes mellitus
     Route: 058
     Dates: start: 20141006

REACTIONS (3)
  - Muscular weakness [Recovering/Resolving]
  - Neutropenia [Recovering/Resolving]
  - Off label use [Unknown]

NARRATIVE: CASE EVENT DATE: 20221101
